FAERS Safety Report 9292410 (Version 1)
Quarter: 2013Q2

REPORT INFORMATION
  Report Type: Report from Study
  Country: US (occurrence: US)
  Receive Date: 20130516
  Receipt Date: 20130516
  Transmission Date: 20140414
  Serious: Yes (Other)
  Sender: FDA-Public Use
  Company Number: US-JNJFOC-20130504859

PATIENT
  Age: 40 Year
  Sex: Male
  Weight: 142.88 kg

DRUGS (6)
  1. REMICADE [Suspect]
     Indication: CROHN^S DISEASE
     Route: 042
  2. REMICADE [Suspect]
     Indication: CROHN^S DISEASE
     Route: 042
     Dates: end: 201301
  3. REMICADE [Suspect]
     Indication: CROHN^S DISEASE
     Route: 042
     Dates: start: 201211
  4. REMICADE [Suspect]
     Indication: CROHN^S DISEASE
     Route: 042
     Dates: start: 201301, end: 2013
  5. BENADRYL [Suspect]
     Indication: JOINT LOCK
     Route: 042
     Dates: start: 201301, end: 201301
  6. LIALDA [Concomitant]
     Indication: CROHN^S DISEASE
     Route: 065

REACTIONS (3)
  - Joint lock [Recovered/Resolved]
  - Drug specific antibody present [Not Recovered/Not Resolved]
  - Urticaria [Recovered/Resolved]
